FAERS Safety Report 6326412-7 (Version None)
Quarter: 2009Q3

REPORT INFORMATION
  Report Type: 
  Country: None (occurrence: None)
  Receive Date: 20090825
  Receipt Date: 20090814
  Transmission Date: 20100115
  Serious: Yes (Hospitalization)
  Sender: FDA-Public Use
  Company Number: US-BIOGENIDEC-2009BI017831

PATIENT
  Age: 52 Year
  Sex: Female

DRUGS (11)
  1. TYSABRI [Suspect]
     Indication: MULTIPLE SCLEROSIS
     Route: 042
     Dates: start: 20080917
  2. FLUOXETINE [Concomitant]
  3. ALPRAZOLAM [Concomitant]
  4. CLOMIPRAMINE HCL [Concomitant]
  5. CLONAZEPAM [Concomitant]
  6. TRAZODONE HCL [Concomitant]
  7. GABAPENTIN [Concomitant]
  8. SEROQUEL [Concomitant]
  9. NAMENDA [Concomitant]
  10. OMEPRAZOLE [Concomitant]
  11. DETROL [Concomitant]

REACTIONS (4)
  - DYSPHAGIA [None]
  - HYPOTENSION [None]
  - NORMOCHROMIC NORMOCYTIC ANAEMIA [None]
  - PNEUMONITIS [None]
